FAERS Safety Report 9800230 (Version 3)
Quarter: 2014Q2

REPORT INFORMATION
  Report Type: Report from Study
  Country: TR (occurrence: TR)
  Receive Date: 20140106
  Receipt Date: 20140407
  Transmission Date: 20141212
  Serious: Yes (Hospitalization)
  Sender: FDA-Public Use
  Company Number: TR-ABBVIE-14P-161-1185375-00

PATIENT
  Age: 57 Year
  Sex: Female
  Weight: 60 kg

DRUGS (1)
  1. HUMIRA [Suspect]
     Indication: PSORIATIC ARTHROPATHY
     Route: 058
     Dates: start: 20110706, end: 20131226

REACTIONS (3)
  - Cardiac disorder [Recovered/Resolved]
  - Asthenia [Recovered/Resolved]
  - Dyspnoea [Recovered/Resolved]
